FAERS Safety Report 20132744 (Version 1)
Quarter: 2021Q4

REPORT INFORMATION
  Report Type: Spontaneous
  Country: CA (occurrence: CA)
  Receive Date: 20211130
  Receipt Date: 20211130
  Transmission Date: 20220303
  Serious: Yes (Hospitalization, Other)
  Sender: FDA-Public Use
  Company Number: CA-ADVANZ PHARMA-202111008018

PATIENT

DRUGS (6)
  1. HYDROXYCHLOROQUINE [Suspect]
     Active Substance: HYDROXYCHLOROQUINE
     Dosage: 200 MG, QD (PLAQUENIL)
     Route: 048
     Dates: start: 202007
  2. PREDNISONE [Suspect]
     Active Substance: PREDNISONE
     Dosage: UNK
     Route: 065
     Dates: start: 202007, end: 202103
  3. METHOTREXATE [Suspect]
     Active Substance: METHOTREXATE
     Dosage: UNK
     Route: 065
     Dates: start: 202007, end: 202105
  4. AZATHIOPRINE [Suspect]
     Active Substance: AZATHIOPRINE
     Dosage: UNK
     Route: 065
     Dates: start: 202007, end: 202009
  5. RITUXIMAB [Suspect]
     Active Substance: RITUXIMAB
     Indication: Central nervous system lupus
     Dosage: 1 G (1 G X 2.05)
     Route: 065
     Dates: start: 20211005, end: 20211005
  6. RITUXIMAB [Suspect]
     Active Substance: RITUXIMAB
     Indication: Epstein-Barr virus infection

REACTIONS (29)
  - Polyarthritis [Unknown]
  - Viral infection [Unknown]
  - Serositis [Unknown]
  - Pleuritic pain [Unknown]
  - Lymphadenopathy [Unknown]
  - Pyrexia [Unknown]
  - Lymphadenitis [Unknown]
  - Hyperplasia [Unknown]
  - Dyspnoea [Unknown]
  - Arthralgia [Unknown]
  - Panic attack [Unknown]
  - Adrenal insufficiency [Unknown]
  - Raynaud^s phenomenon [Unknown]
  - Behcet^s syndrome [Unknown]
  - Haemolytic anaemia [Unknown]
  - Asthenia [Unknown]
  - Arthralgia [Unknown]
  - General physical health deterioration [Unknown]
  - Arthritis [Recovered/Resolved]
  - Pleurisy [Recovered/Resolved]
  - Proteinuria [Recovered/Resolved]
  - Anaemia [Unknown]
  - Hepatic enzyme increased [Unknown]
  - Thrombocytopenia [Unknown]
  - Alopecia [Unknown]
  - Dizziness [Unknown]
  - Tinnitus [Unknown]
  - Nausea [Unknown]
  - Fatigue [Unknown]

NARRATIVE: CASE EVENT DATE: 20200901
